FAERS Safety Report 4895549-1 (Version None)
Quarter: 2006Q1

REPORT INFORMATION
  Report Type: 
  Country: None (occurrence: None)
  Receive Date: 20060130
  Receipt Date: 20050824
  Transmission Date: 20060701
  Serious: Yes (Death, Life-Threatening, Hospitalization)
  Sender: FDA-Public Use
  Company Number: GB-ROCHE-415453

PATIENT
  Age: 66 Year
  Sex: Female
  Weight: 56 kg

DRUGS (8)
  1. IBANDRONIC ACID [Suspect]
     Indication: OSTEOPOROSIS POSTMENOPAUSAL
     Route: 048
     Dates: start: 20050815
  2. ACETYLSALICYLIC ACID [Concomitant]
     Dates: start: 20050608
  3. BECLOMETHASONE DIPROPIONATE [Concomitant]
     Route: 055
     Dates: start: 19871030
  4. FUROSEMIDE [Concomitant]
     Dates: start: 20050511
  5. IPRATROPIUM BROMIDE [Concomitant]
     Dates: start: 20040902
  6. SALBUTAMOL [Concomitant]
     Dates: start: 19871030
  7. SALMETEROL [Concomitant]
     Dates: start: 19950526
  8. PREDNISOLONE E-C [Concomitant]
     Dates: start: 20050815, end: 20050825

REACTIONS (7)
  - CELLULITIS [None]
  - CYANOSIS [None]
  - DEATH [None]
  - DUODENAL ULCER HAEMORRHAGE [None]
  - EMBOLISM [None]
  - PULMONARY EMBOLISM [None]
  - SEPSIS [None]
